FAERS Safety Report 9679231 (Version 2)
Quarter: 2013Q4

REPORT INFORMATION
  Report Type: Report from Study
  Country: BE (occurrence: BE)
  Receive Date: 20131108
  Receipt Date: 20131108
  Transmission Date: 20140711
  Serious: Yes (Death, Hospitalization)
  Sender: FDA-Public Use
  Company Number: BE-ROCHE-1192776

PATIENT
  Age: 45 Year
  Sex: Male
  Weight: 94 kg

DRUGS (6)
  1. AVASTIN [Suspect]
     Indication: GLIOBLASTOMA
     Route: 042
     Dates: start: 20130110, end: 20130207
  2. TRILEPTAL [Concomitant]
     Indication: EPILEPSY
     Route: 048
     Dates: start: 201003
  3. PANTOMED (PANTOPRAZOLE) [Concomitant]
     Indication: GASTRIC ULCER
     Route: 048
     Dates: start: 201301
  4. MEDROL [Concomitant]
     Indication: BRAIN OEDEMA
     Route: 048
     Dates: start: 20130218
  5. SIPRALEXA [Concomitant]
     Indication: DEPRESSION
     Route: 048
     Dates: start: 200603
  6. CLEXANE [Concomitant]
     Indication: PULMONARY EMBOLISM
     Route: 058
     Dates: start: 20130215

REACTIONS (2)
  - Chest pain [Fatal]
  - Disease progression [Fatal]
